FAERS Safety Report 25526215 (Version 1)
Quarter: 2025Q3

REPORT INFORMATION
  Report Type: Spontaneous
  Country: GB (occurrence: GB)
  Receive Date: 20250707
  Receipt Date: 20250707
  Transmission Date: 20251021
  Serious: Yes (Life-Threatening, Hospitalization, Disabling, Other)
  Sender: MYLAN
  Company Number: None

PATIENT
  Age: 25 Year
  Sex: Female
  Weight: 93 kg

DRUGS (44)
  1. SERTRALINE [Suspect]
     Active Substance: SERTRALINE HYDROCHLORIDE
     Indication: Product used for unknown indication
     Dosage: 100 MILLIGRAM, QD (100MG DAILY, STARTED 1 TO 2 YEARS AGO)
  2. SERTRALINE [Suspect]
     Active Substance: SERTRALINE HYDROCHLORIDE
     Dosage: 100 MILLIGRAM, QD (100MG DAILY, STARTED 1 TO 2 YEARS AGO)
     Route: 065
  3. SERTRALINE [Suspect]
     Active Substance: SERTRALINE HYDROCHLORIDE
     Dosage: 100 MILLIGRAM, QD (100MG DAILY, STARTED 1 TO 2 YEARS AGO)
     Route: 065
  4. SERTRALINE [Suspect]
     Active Substance: SERTRALINE HYDROCHLORIDE
     Dosage: 100 MILLIGRAM, QD (100MG DAILY, STARTED 1 TO 2 YEARS AGO)
  5. AMITRIPTYLINE [Concomitant]
     Active Substance: AMITRIPTYLINE
  6. AMITRIPTYLINE [Concomitant]
     Active Substance: AMITRIPTYLINE
     Route: 065
  7. AMITRIPTYLINE [Concomitant]
     Active Substance: AMITRIPTYLINE
     Route: 065
  8. AMITRIPTYLINE [Concomitant]
     Active Substance: AMITRIPTYLINE
  9. DESOGESTREL [Concomitant]
     Active Substance: DESOGESTREL
  10. DESOGESTREL [Concomitant]
     Active Substance: DESOGESTREL
     Route: 065
  11. DESOGESTREL [Concomitant]
     Active Substance: DESOGESTREL
     Route: 065
  12. DESOGESTREL [Concomitant]
     Active Substance: DESOGESTREL
  13. DOCUSATE [Concomitant]
     Active Substance: DOCUSATE
  14. DOCUSATE [Concomitant]
     Active Substance: DOCUSATE
     Route: 065
  15. DOCUSATE [Concomitant]
     Active Substance: DOCUSATE
     Route: 065
  16. DOCUSATE [Concomitant]
     Active Substance: DOCUSATE
  17. FOLIC ACID [Concomitant]
     Active Substance: FOLIC ACID
  18. FOLIC ACID [Concomitant]
     Active Substance: FOLIC ACID
     Route: 065
  19. FOLIC ACID [Concomitant]
     Active Substance: FOLIC ACID
     Route: 065
  20. FOLIC ACID [Concomitant]
     Active Substance: FOLIC ACID
  21. IBUPROFEN [Concomitant]
     Active Substance: IBUPROFEN
  22. IBUPROFEN [Concomitant]
     Active Substance: IBUPROFEN
     Route: 065
  23. IBUPROFEN [Concomitant]
     Active Substance: IBUPROFEN
     Route: 065
  24. IBUPROFEN [Concomitant]
     Active Substance: IBUPROFEN
  25. POLYETHYLENE GLYCOLS [Concomitant]
     Active Substance: POLYETHYLENE GLYCOLS
  26. POLYETHYLENE GLYCOLS [Concomitant]
     Active Substance: POLYETHYLENE GLYCOLS
     Route: 065
  27. POLYETHYLENE GLYCOLS [Concomitant]
     Active Substance: POLYETHYLENE GLYCOLS
     Route: 065
  28. POLYETHYLENE GLYCOLS [Concomitant]
     Active Substance: POLYETHYLENE GLYCOLS
  29. LORATADINE [Concomitant]
     Active Substance: LORATADINE
  30. LORATADINE [Concomitant]
     Active Substance: LORATADINE
     Route: 065
  31. LORATADINE [Concomitant]
     Active Substance: LORATADINE
     Route: 065
  32. LORATADINE [Concomitant]
     Active Substance: LORATADINE
  33. MELATONIN [Concomitant]
     Active Substance: MELATONIN
  34. MELATONIN [Concomitant]
     Active Substance: MELATONIN
     Route: 065
  35. MELATONIN [Concomitant]
     Active Substance: MELATONIN
     Route: 065
  36. MELATONIN [Concomitant]
     Active Substance: MELATONIN
  37. ACETAMINOPHEN [Concomitant]
     Active Substance: ACETAMINOPHEN
  38. ACETAMINOPHEN [Concomitant]
     Active Substance: ACETAMINOPHEN
     Route: 065
  39. ACETAMINOPHEN [Concomitant]
     Active Substance: ACETAMINOPHEN
     Route: 065
  40. ACETAMINOPHEN [Concomitant]
     Active Substance: ACETAMINOPHEN
  41. PRUCALOPRIDE [Concomitant]
     Active Substance: PRUCALOPRIDE
  42. PRUCALOPRIDE [Concomitant]
     Active Substance: PRUCALOPRIDE
     Route: 065
  43. PRUCALOPRIDE [Concomitant]
     Active Substance: PRUCALOPRIDE
     Route: 065
  44. PRUCALOPRIDE [Concomitant]
     Active Substance: PRUCALOPRIDE

REACTIONS (1)
  - Mitochondrial myopathy [Recovering/Resolving]

NARRATIVE: CASE EVENT DATE: 20250604
